FAERS Safety Report 4345580-X (Version None)
Quarter: 2004Q2

REPORT INFORMATION
  Report Type: 
  Country: None (occurrence: None)
  Receive Date: 20040421
  Receipt Date: 20040405
  Transmission Date: 20050107
  Serious: Yes (Hospitalization)
  Sender: FDA-Public Use
  Company Number: 189408

PATIENT
  Age: 66 Year
  Sex: Male

DRUGS (8)
  1. AVONEX [Suspect]
     Indication: MULTIPLE SCLEROSIS
     Dosage: 30 MCG QW IM
     Route: 030
     Dates: start: 19991119, end: 20030101
  2. AVONEX [Suspect]
     Indication: MULTIPLE SCLEROSIS
     Dosage: 30 MCG QW IM
     Route: 030
     Dates: start: 20030101
  3. NAPROSYN [Concomitant]
  4. BACLOFEN [Concomitant]
  5. VALIUM [Concomitant]
  6. PROZAC [Concomitant]
  7. OXYTROL [Concomitant]
  8. MILK OF MAGNESIA TAB [Concomitant]

REACTIONS (2)
  - FALL [None]
  - HIP FRACTURE [None]
